FAERS Safety Report 24074253 (Version 1)
Quarter: 2024Q3

REPORT INFORMATION
  Report Type: Report from Study
  Country: IT (occurrence: IT)
  Receive Date: 20240710
  Receipt Date: 20240710
  Transmission Date: 20241016
  Serious: Yes (Hospitalization)
  Sender: PIERRE FABRE MEDICAMENT
  Company Number: IT-PFM-2024-01614

PATIENT

DRUGS (4)
  1. PROPRANOLOL HYDROCHLORIDE [Suspect]
     Active Substance: PROPRANOLOL HYDROCHLORIDE
     Indication: Cyclic vomiting syndrome
     Dosage: 1 MG/KG/DAY FOR 17 MONTHS
     Route: 065
  2. PROPRANOLOL HYDROCHLORIDE [Suspect]
     Active Substance: PROPRANOLOL HYDROCHLORIDE
     Indication: Off label use
  3. AMITRIPTYLINE [Suspect]
     Active Substance: AMITRIPTYLINE
     Indication: Cyclic vomiting syndrome
     Dosage: 1 MG/KG/DAY
     Route: 065
  4. CYPROHEPTADINE [Suspect]
     Active Substance: CYPROHEPTADINE
     Indication: Cyclic vomiting syndrome
     Dosage: 0.25-0.5 MG/KG/DAY
     Route: 065

REACTIONS (6)
  - Dehydration [Unknown]
  - Electroencephalogram abnormal [Unknown]
  - Drug ineffective for unapproved indication [Unknown]
  - Product use issue [Unknown]
  - Product use issue [Unknown]
  - Off label use [Unknown]
